FAERS Safety Report 12875468 (Version 1)
Quarter: 2016Q4

REPORT INFORMATION
  Report Type: Report from Study
  Country: None (occurrence: US)
  Receive Date: 20161024
  Receipt Date: 20161024
  Transmission Date: 20170207
  Serious: Yes (Hospitalization)
  Sender: FDA-Public Use
  Company Number: US-ABBVIE-16K-163-1758987-00

PATIENT
  Sex: Female

DRUGS (2)
  1. HUMIRA [Suspect]
     Active Substance: ADALIMUMAB
     Indication: RHEUMATOID ARTHRITIS
     Route: 058
     Dates: start: 201504, end: 201606
  2. HUMIRA [Suspect]
     Active Substance: ADALIMUMAB
     Dosage: SIX WEEKS AFTER DISCONTINUATION
     Route: 058
     Dates: start: 2016

REACTIONS (3)
  - Abdominal discomfort [Not Recovered/Not Resolved]
  - Gallbladder disorder [Unknown]
  - Pancreatic disorder [Unknown]
